FAERS Safety Report 5619567-0 (Version None)
Quarter: 2008Q1

REPORT INFORMATION
  Report Type: 
  Country: None (occurrence: None)
  Receive Date: 20080205
  Receipt Date: 20080205
  Transmission Date: 20080703
  Serious: Yes (Other)
  Sender: FDA-Public Use
  Company Number: None

PATIENT
  Age: 64 Year
  Sex: Male
  Weight: 100.6985 kg

DRUGS (3)
  1. REQUIP [Suspect]
     Indication: PARKINSON'S DISEASE
     Dosage: 3MG 3 TIMES DAILY PO
     Route: 048
     Dates: start: 20070101, end: 20080203
  2. REQUIP [Suspect]
     Indication: TREMOR
     Dosage: 3MG 3 TIMES DAILY PO
     Route: 048
     Dates: start: 20070101, end: 20080203
  3. REQUIP [Suspect]

REACTIONS (1)
  - PATHOLOGICAL GAMBLING [None]
